FAERS Safety Report 22820939 (Version 8)
Quarter: 2023Q4

REPORT INFORMATION
  Report Type: Spontaneous
  Country: US (occurrence: US)
  Receive Date: 20230814
  Receipt Date: 20231218
  Transmission Date: 20240109
  Serious: Yes (Other)
  Sender: FDA-Public Use
  Company Number: US-PFIZER INC-PV202300138682

PATIENT
  Age: 75 Year
  Sex: Female
  Weight: 63.492 kg

DRUGS (7)
  1. IBRANCE [Suspect]
     Active Substance: PALBOCICLIB
     Indication: Breast cancer metastatic
     Dosage: FOR 21 DAYS ON, OFF 7 DAYS
     Dates: start: 20230621
  2. IBRANCE [Suspect]
     Active Substance: PALBOCICLIB
     Dosage: FOR 21 DAYS ON, OFF 7 DAYS
  3. IBRANCE [Suspect]
     Active Substance: PALBOCICLIB
     Dosage: 1X/DAY FOR 3 WEEKS THEN STOP FOR 7 DAYS
  4. IBRANCE [Suspect]
     Active Substance: PALBOCICLIB
     Dosage: 1X/DAY FOR 3 WEEKS THEN STOP FOR 7 DAYS
  5. IBRANCE [Suspect]
     Active Substance: PALBOCICLIB
     Dosage: ONLY LAST TO 05DEC2023, THEN OFF AND NEED DEC2023 2 WEEKS MEDS TO BE FILLED
  6. FASLODEX [Concomitant]
     Active Substance: FULVESTRANT
     Dosage: 2X MONTHLY
     Dates: start: 20230109
  7. FASLODEX [Concomitant]
     Active Substance: FULVESTRANT
     Dosage: 500 MG, MONTHLY

REACTIONS (18)
  - Alopecia [Not Recovered/Not Resolved]
  - Neoplasm progression [Not Recovered/Not Resolved]
  - Epistaxis [Not Recovered/Not Resolved]
  - Gingival pain [Not Recovered/Not Resolved]
  - White blood cell count decreased [Not Recovered/Not Resolved]
  - Amnesia [Not Recovered/Not Resolved]
  - Asthenia [Recovered/Resolved]
  - Somnolence [Not Recovered/Not Resolved]
  - Oral herpes [Not Recovered/Not Resolved]
  - Muscle spasms [Unknown]
  - Stomatitis [Unknown]
  - Diarrhoea [Unknown]
  - Noninfective gingivitis [Unknown]
  - Contusion [Unknown]
  - Pain [Unknown]
  - Fatigue [Unknown]
  - Arthralgia [Unknown]
  - Osteoporosis [Unknown]

NARRATIVE: CASE EVENT DATE: 20230601
